FAERS Safety Report 7861282-7 (Version None)
Quarter: 2011Q4

REPORT INFORMATION
  Report Type: 
  Country: None (occurrence: None)
  Receive Date: 20111027
  Receipt Date: 20111017
  Transmission Date: 20120403
  Serious: Yes (Life-Threatening, Hospitalization)
  Sender: FDA-Public Use
  Company Number: US-BAYER-2011-062599

PATIENT
  Age: 43 Year
  Sex: Female
  Weight: 104 kg

DRUGS (10)
  1. YASMIN [Suspect]
     Indication: POLYCYSTIC OVARIES
  2. DROSPIRENONE AND ETHINYL ESTRADIOL [Suspect]
     Indication: CONTRACEPTION
     Dosage: UNK
     Route: 048
     Dates: start: 20080720, end: 20090816
  3. YASMIN [Suspect]
     Indication: CONTRACEPTION
     Dosage: UNK
     Route: 048
     Dates: start: 20030909, end: 20080626
  4. DROSPIRENONE AND ETHINYL ESTRADIOL [Suspect]
     Indication: POLYCYSTIC OVARIES
  5. NORVASC [Concomitant]
     Dosage: 5 MG, BID
  6. ZYRTEC [Concomitant]
     Dosage: UNK
     Dates: start: 20070101
  7. ADVAIR DISKUS 100/50 [Concomitant]
     Dosage: UNK UNK, BID
     Route: 045
     Dates: start: 20070101
  8. AMLODIPINE [Concomitant]
     Dosage: 10 MG, UNK
     Dates: start: 20000101
  9. MICARDIS [Concomitant]
     Dosage: 80 MG, QD
     Dates: start: 20000101
  10. SYNTHROID [Concomitant]
     Dosage: UNK UNK, QD

REACTIONS (7)
  - PAINFUL RESPIRATION [None]
  - PULMONARY EMBOLISM [None]
  - CHEST PAIN [None]
  - DYSPNOEA [None]
  - FATIGUE [None]
  - FEAR [None]
  - INJURY [None]
